FAERS Safety Report 18481869 (Version 2)
Quarter: 2021Q2

REPORT INFORMATION
  Report Type: Spontaneous
  Country: US (occurrence: US)
  Receive Date: 20201109
  Receipt Date: 20210409
  Transmission Date: 20210717
  Serious: No
  Sender: FDA-Public Use
  Company Number: US-PFIZER INC-2020431634

PATIENT
  Age: 85 Year
  Sex: Female

DRUGS (1)
  1. XELJANZ XR [Suspect]
     Active Substance: TOFACITINIB CITRATE
     Dosage: 11 MG

REACTIONS (4)
  - Psoriasis [Recovering/Resolving]
  - Pruritus [Recovering/Resolving]
  - Seasonal allergy [Unknown]
  - Rhinorrhoea [Unknown]
